FAERS Safety Report 19031752 (Version 1)
Quarter: 2021Q1

REPORT INFORMATION
  Report Type: Spontaneous
  Country: GB (occurrence: GB)
  Receive Date: 20210319
  Receipt Date: 20210319
  Transmission Date: 20210420
  Serious: Yes (Hospitalization, Other)
  Sender: FDA-Public Use
  Company Number: GB-PFIZER INC-2021262477

PATIENT
  Age: 89 Year
  Sex: Female
  Weight: 53 kg

DRUGS (3)
  1. PREGABALIN. [Suspect]
     Active Substance: PREGABALIN
     Indication: ARTHRALGIA
     Dosage: 50 MG, 3X/DAY
     Route: 048
     Dates: start: 20210205, end: 20210217
  2. MORPHINE [Suspect]
     Active Substance: MORPHINE
     Indication: ARTHRALGIA
     Dosage: 5 MG
     Route: 048
     Dates: start: 20210214, end: 20210217
  3. CODEINE [Suspect]
     Active Substance: CODEINE
     Indication: ARTHRALGIA
     Dosage: 60MG QDS
     Route: 048
     Dates: start: 20210214, end: 20210217

REACTIONS (4)
  - Off label use [Unknown]
  - Respiratory depression [Recovered/Resolved with Sequelae]
  - Respiratory failure [Recovered/Resolved with Sequelae]
  - Toxicity to various agents [Recovered/Resolved with Sequelae]

NARRATIVE: CASE EVENT DATE: 20210205
